FAERS Safety Report 13355624 (Version 1)
Quarter: 2017Q1

REPORT INFORMATION
  Report Type: Spontaneous
  Country: RU (occurrence: RU)
  Receive Date: 20170321
  Receipt Date: 20170321
  Transmission Date: 20170429
  Serious: Yes (Other)
  Sender: FDA-Public Use
  Company Number: ALCN2017RU002056

PATIENT
  Age: 33 Year
  Sex: Male

DRUGS (2)
  1. VIGAMOX [Suspect]
     Active Substance: MOXIFLOXACIN HYDROCHLORIDE
     Indication: CONJUNCTIVITIS
     Dosage: 1 GTT, TID
     Route: 047
     Dates: start: 20170228, end: 20170303
  2. OPHTALMOFERON [Concomitant]
     Indication: ADENOVIRAL CONJUNCTIVITIS
     Route: 065

REACTIONS (5)
  - Eyelid exfoliation [Recovered/Resolved]
  - Conjunctival oedema [Recovered/Resolved]
  - Eye allergy [Recovered/Resolved]
  - Eye oedema [Recovered/Resolved]
  - Eyelids pruritus [Recovered/Resolved]

NARRATIVE: CASE EVENT DATE: 20170228
